FAERS Safety Report 10748049 (Version 1)
Quarter: 2015Q1

REPORT INFORMATION
  Report Type: Report from Study
  Country: DE (occurrence: DE)
  Receive Date: 20150129
  Receipt Date: 20150129
  Transmission Date: 20150721
  Serious: Yes (Hospitalization, Other)
  Sender: FDA-Public Use
  Company Number: DE-GLAXOSMITHKLINE-DE2015GSK004374

PATIENT
  Age: 55 Year
  Sex: Female
  Weight: 85 kg

DRUGS (13)
  1. TOPOTECAN HYDROCHLORIDE. [Suspect]
     Active Substance: TOPOTECAN HYDROCHLORIDE
     Indication: OVARIAN CANCER
     Dosage: 4 MG/M2, UNK
     Route: 042
     Dates: start: 20141021, end: 20150102
  2. ASPIRIN. [Concomitant]
     Active Substance: ASPIRIN
  3. BISOPROLOL [Concomitant]
     Active Substance: BISOPROLOL
  4. PAZOPANIB [Suspect]
     Active Substance: PAZOPANIB
     Dosage: 200 MG, QD
     Route: 048
     Dates: start: 20141114, end: 20150107
  5. KALINOR RETARD [Concomitant]
     Active Substance: POTASSIUM CHLORIDE
  6. OMEPRAZOL [Concomitant]
     Active Substance: OMEPRAZOLE
  7. PAZOPANIB [Suspect]
     Active Substance: PAZOPANIB
     Indication: OVARIAN CANCER
     Dosage: 200 MG, QD
     Route: 048
     Dates: start: 20141021, end: 20150107
  8. NOVALGIN [Concomitant]
     Active Substance: METAMIZOLE SODIUM
  9. TORASEMID [Concomitant]
     Active Substance: TORSEMIDE
  10. RAMILICH [Concomitant]
     Active Substance: RAMIPRIL
  11. PASPERTIN [Concomitant]
     Active Substance: METOCLOPRAMIDE HYDROCHLORIDE
  12. ZOFRAN [Concomitant]
     Active Substance: ONDANSETRON HYDROCHLORIDE
  13. ALDACTONE [Concomitant]
     Active Substance: SPIRONOLACTONE

REACTIONS (4)
  - Ascites [Recovering/Resolving]
  - Embolism [Recovered/Resolved]
  - Pulmonary embolism [Recovered/Resolved]
  - Dyspnoea [Recovering/Resolving]

NARRATIVE: CASE EVENT DATE: 20150107
